FAERS Safety Report 25488079 (Version 2)
Quarter: 2025Q3

REPORT INFORMATION
  Report Type: Spontaneous
  Country: EU (occurrence: EU)
  Receive Date: 20250627
  Receipt Date: 20250714
  Transmission Date: 20251021
  Serious: Yes (Hospitalization, Other)
  Sender: AUROBINDO
  Company Number: EU-ZENTIVA-2025-ZT-039394

PATIENT
  Age: 73 Year
  Sex: Male

DRUGS (1)
  1. METFORMIN [Suspect]
     Active Substance: METFORMIN HYDROCHLORIDE
     Indication: Type 2 diabetes mellitus
     Route: 065

REACTIONS (10)
  - Haemolytic anaemia [Recovered/Resolved]
  - Pancreatitis chronic [Recovered/Resolved]
  - Respiratory failure [Recovered/Resolved]
  - Thrombocytopenia [Recovered/Resolved]
  - Anaemia macrocytic [Recovered/Resolved]
  - Asthenia [Recovered/Resolved]
  - Chronic gastritis [Recovered/Resolved]
  - Dyspnoea [Recovered/Resolved]
  - Hyperhomocysteinaemia [Recovered/Resolved]
  - Vitamin B12 deficiency [Recovered/Resolved]
